FAERS Safety Report 5602038-5 (Version None)
Quarter: 2008Q1

REPORT INFORMATION
  Report Type: 
  Country: None (occurrence: None)
  Receive Date: 20080122
  Receipt Date: 20080122
  Transmission Date: 20080703
  Serious: Yes (Hospitalization)
  Sender: FDA-Public Use
  Company Number: None

PATIENT
  Sex: Female
  Weight: 62.5964 kg

DRUGS (1)
  1. LEVOXYL [Suspect]
     Dosage: 600 MCG ONCE PO
     Route: 048
     Dates: start: 20071229, end: 20071229

REACTIONS (18)
  - ANXIETY [None]
  - CHEST DISCOMFORT [None]
  - CHEST PAIN [None]
  - DIZZINESS [None]
  - DYSPNOEA [None]
  - GASTROOESOPHAGEAL REFLUX DISEASE [None]
  - HEART RATE INCREASED [None]
  - HYPERHIDROSIS [None]
  - HYPOAESTHESIA [None]
  - MYALGIA [None]
  - PAIN IN EXTREMITY [None]
  - PAIN IN JAW [None]
  - PALPITATIONS [None]
  - PANIC REACTION [None]
  - PARAESTHESIA [None]
  - PRESYNCOPE [None]
  - RESPIRATORY RATE INCREASED [None]
  - SENSORY DISTURBANCE [None]
